FAERS Safety Report 25128086 (Version 1)
Quarter: 2025Q1

REPORT INFORMATION
  Report Type: Spontaneous
  Country: IN (occurrence: IN)
  Receive Date: 20250327
  Receipt Date: 20250327
  Transmission Date: 20250408
  Serious: Yes (Other)
  Sender: BAXTER
  Company Number: IN-BAXTER-2025BAX011856

PATIENT
  Age: 69 Year
  Sex: Male

DRUGS (4)
  1. DESFLURANE [Suspect]
     Active Substance: DESFLURANE
     Indication: Surgery
     Route: 065
  2. TELMISARTAN [Concomitant]
     Active Substance: TELMISARTAN
     Route: 065
  3. METFORMIN HYDROCHLORIDE [Concomitant]
     Active Substance: METFORMIN HYDROCHLORIDE
     Route: 065
  4. Silodal [Concomitant]
     Route: 065

REACTIONS (2)
  - Unwanted awareness during anaesthesia [Unknown]
  - Therapeutic product effect incomplete [Unknown]

NARRATIVE: CASE EVENT DATE: 20250221
